FAERS Safety Report 7973843-5 (Version None)
Quarter: 2011Q4

REPORT INFORMATION
  Report Type: 
  Country: None (occurrence: None)
  Receive Date: 20111209
  Receipt Date: 20111201
  Transmission Date: 20120403
  Serious: Yes (Hospitalization)
  Sender: FDA-Public Use
  Company Number: 2011MA017240

PATIENT
  Age: 89 Year
  Sex: Female

DRUGS (5)
  1. BENDROFLUMETHAZIDE [Concomitant]
  2. RAMIPRIL [Suspect]
     Dosage: 5 MG, QD, PO
     Route: 048
     Dates: start: 20111001
  3. ACETAMINOPHEN [Concomitant]
  4. ACETYLSALICYLIC ACID SRT [Concomitant]
  5. IBUPROFEN [Concomitant]

REACTIONS (2)
  - ANGIOEDEMA [None]
  - DERMATITIS ALLERGIC [None]
